FAERS Safety Report 8174944-1 (Version None)
Quarter: 2012Q1

REPORT INFORMATION
  Report Type: 
  Country: None (occurrence: None)
  Receive Date: 20120229
  Receipt Date: 20111011
  Transmission Date: 20120608
  Serious: No
  Sender: FDA-Public Use
  Company Number: US-GLAXOSMITHKLINE-A0948645A

PATIENT
  Age: 50 Year
  Sex: Female

DRUGS (18)
  1. ECHINACEA [Suspect]
     Indication: PRODUCT USED FOR UNKNOWN INDICATION
     Route: 065
  2. ACETAMINOPHEN [Concomitant]
  3. NADOLOL [Concomitant]
  4. RESTASIS [Concomitant]
  5. ADVAIR DISKUS 100/50 [Concomitant]
  6. NAPROXEN [Concomitant]
  7. TOPAMAX [Concomitant]
  8. NEXIUM [Concomitant]
  9. ASPIRIN [Concomitant]
  10. GUAIFENEX [Concomitant]
  11. PATANOL [Concomitant]
  12. ALBUTEROL [Concomitant]
  13. BUTABITAL + CAFFEINE + PARACETAMOL [Concomitant]
  14. VALTREX [Suspect]
     Indication: GENITAL HERPES
     Dosage: 500MG PER DAY
     Route: 048
     Dates: start: 19980101
  15. MULTI-VITAMIN [Concomitant]
  16. VERAMYST [Concomitant]
  17. ZETIA [Concomitant]
  18. XYZAL [Concomitant]

REACTIONS (5)
  - DIARRHOEA [None]
  - GENITAL HERPES [None]
  - TREATMENT NONCOMPLIANCE [None]
  - DRUG INTERACTION [None]
  - NAUSEA [None]
